FAERS Safety Report 13455200 (Version 1)
Quarter: 2017Q2

REPORT INFORMATION
  Report Type: Spontaneous
  Country: US (occurrence: US)
  Receive Date: 20170419
  Receipt Date: 20170419
  Transmission Date: 20170830
  Serious: Yes (Other)
  Sender: FDA-Public Use
  Company Number: US-SAOL THERAPEUTICS-0701122977

PATIENT
  Sex: Female

DRUGS (12)
  1. HYDROMORPHONE [Suspect]
     Active Substance: HYDROMORPHONE
     Dosage: 0.11 MG, \DAY
     Route: 037
  2. MORPHINE [Concomitant]
     Active Substance: MORPHINE
     Dosage: UKN
     Route: 048
  3. BACLOFEN. [Suspect]
     Active Substance: BACLOFEN
     Indication: PAIN
     Dosage: 8.489 ?G, \DAY
     Route: 037
  4. MORPHINE [Suspect]
     Active Substance: MORPHINE
     Dosage: 1.697 MG, \DAY
     Route: 037
  5. LIDOCAINE. [Concomitant]
     Active Substance: LIDOCAINE
     Route: 061
  6. NEURONTIN [Concomitant]
     Active Substance: GABAPENTIN
  7. MORPHINE [Suspect]
     Active Substance: MORPHINE
     Dosage: 2.2 MG, \DAY
     Route: 037
  8. COUMADIN [Concomitant]
     Active Substance: WARFARIN SODIUM
  9. SEROQUEL [Concomitant]
     Active Substance: QUETIAPINE FUMARATE
  10. BACLOFEN. [Suspect]
     Active Substance: BACLOFEN
     Indication: SPINAL PAIN
     Dosage: 11 ?G, \DAY
     Route: 037
  11. IMITREX [Concomitant]
     Active Substance: SUMATRIPTAN SUCCINATE
  12. VISTARIL [Concomitant]
     Active Substance: HYDROXYZINE PAMOATE

REACTIONS (24)
  - Spinal cord herniation [Not Recovered/Not Resolved]
  - Back pain [Not Recovered/Not Resolved]
  - Neck pain [Not Recovered/Not Resolved]
  - Herpes zoster [Unknown]
  - Condition aggravated [Not Recovered/Not Resolved]
  - Malaise [Unknown]
  - Gait disturbance [Unknown]
  - Spinal cord compression [Not Recovered/Not Resolved]
  - Pain [Not Recovered/Not Resolved]
  - Therapy non-responder [Not Recovered/Not Resolved]
  - Spinal fusion surgery [Unknown]
  - Drug withdrawal syndrome [Unknown]
  - Asthenia [Unknown]
  - Intervertebral disc degeneration [Not Recovered/Not Resolved]
  - Fall [Unknown]
  - Weight decreased [Unknown]
  - Scar [Unknown]
  - General physical health deterioration [Not Recovered/Not Resolved]
  - Neuralgia [Not Recovered/Not Resolved]
  - Device failure [Unknown]
  - Skin odour abnormal [Unknown]
  - Hypophagia [Unknown]
  - Off label use [Unknown]
  - Foot fracture [Unknown]

NARRATIVE: CASE EVENT DATE: 2015
